FAERS Safety Report 6691422-7 (Version None)
Quarter: 2010Q2

REPORT INFORMATION
  Report Type: 
  Country: None (occurrence: None)
  Receive Date: 20100422
  Receipt Date: 20100420
  Transmission Date: 20101027
  Serious: Yes (Other)
  Sender: FDA-Public Use
  Company Number: US-ROXANE LABORATORIES, INC.-2010-RO-00441RO

PATIENT
  Age: 50 Year
  Sex: Male

DRUGS (3)
  1. RISPERIDONE [Suspect]
     Indication: BIPOLAR DISORDER
     Dosage: 2 MG
  2. CARBAMAZEPINE [Suspect]
     Indication: BIPOLAR DISORDER
  3. QUETIAPINE [Suspect]
     Indication: BIPOLAR DISORDER

REACTIONS (3)
  - AKATHISIA [None]
  - DEPRESSED MOOD [None]
  - SEDATION [None]
